FAERS Safety Report 4810325-3 (Version None)
Quarter: 2005Q4

REPORT INFORMATION
  Report Type: 
  Country: None (occurrence: None)
  Receive Date: 20051026
  Receipt Date: 20051017
  Transmission Date: 20060501
  Serious: Yes (Death)
  Sender: FDA-Public Use
  Company Number: US-ROCHE-421449

PATIENT
  Age: 46 Year
  Sex: Male

DRUGS (3)
  1. PEGASYS [Suspect]
     Indication: HEPATITIS C
     Route: 058
     Dates: start: 20041220
  2. PEGASYS [Suspect]
     Route: 058
     Dates: start: 20041109
  3. COPEGUS [Suspect]
     Indication: HEPATITIS C
     Route: 065
     Dates: start: 20041109

REACTIONS (3)
  - ARTHRITIS BACTERIAL [None]
  - BACTERAEMIA [None]
  - BLEEDING VARICOSE VEIN [None]
